FAERS Safety Report 8901181 (Version 2)
Quarter: 2012Q4

REPORT INFORMATION
  Report Type: 
  Country: VE (occurrence: VE)
  Receive Date: 20121109
  Receipt Date: 20121116
  Transmission Date: 20130627
  Serious: Yes (Death, Hospitalization)
  Sender: FDA-Public Use
  Company Number: VE-ROCHE-CID000000002222374

PATIENT
  Age: 59 Year
  Sex: Male

DRUGS (3)
  1. XOLAIR [Suspect]
     Indication: ASTHMA
     Dosage: 5 ampules
     Route: 058
  2. FORADIL [Concomitant]
     Route: 065
  3. MIFLONIDE [Concomitant]
     Route: 065

REACTIONS (2)
  - Lung neoplasm malignant [Unknown]
  - Respiratory failure [Fatal]
